FAERS Safety Report 10375256 (Version 1)
Quarter: 2014Q3

REPORT INFORMATION
  Report Type: Spontaneous
  Country: US (occurrence: None)
  Receive Date: 20140808
  Receipt Date: 20140808
  Transmission Date: 20150326
  Serious: No
  Sender: FDA-Public Use
  Company Number: None

PATIENT
  Age: 37 Year
  Sex: Female
  Weight: 63.5 kg

DRUGS (1)
  1. METHYLPHENIDATE ER [Suspect]
     Active Substance: METHYLPHENIDATE
     Indication: ATTENTION DEFICIT/HYPERACTIVITY DISORDER
     Dosage: ONE PILL ONCE DAILY TAKEN BY MOUTH
     Route: 048
     Dates: start: 20140301, end: 20140801

REACTIONS (3)
  - Product substitution issue [None]
  - Drug ineffective [None]
  - Product quality issue [None]

NARRATIVE: CASE EVENT DATE: 20140305
